FAERS Safety Report 10358802 (Version 2)
Quarter: 2014Q3

REPORT INFORMATION
  Report Type: Spontaneous
  Country: BR (occurrence: BR)
  Receive Date: 20140804
  Receipt Date: 20140804
  Transmission Date: 20150326
  Serious: Yes (Death, Hospitalization, Other)
  Sender: FDA-Public Use
  Company Number: BR-PFIZER INC-2013360385

PATIENT
  Age: 48 Year
  Sex: Male
  Weight: 112 kg

DRUGS (10)
  1. SOMAVERT [Suspect]
     Active Substance: PEGVISOMANT
     Indication: ACROMEGALY
     Dosage: 10 MG, 1X/DAY
     Route: 058
     Dates: start: 201209, end: 2013
  2. ENALAPRIL MALEATE. [Concomitant]
     Active Substance: ENALAPRIL MALEATE
     Indication: CARDIAC PACEMAKER INSERTION
     Dosage: UNK
     Dates: start: 2010
  3. ANCORON [Concomitant]
     Active Substance: AMIODARONE HYDROCHLORIDE
     Indication: CARDIAC PACEMAKER INSERTION
     Dosage: UNK
     Dates: start: 2010
  4. FUROSEMIDE. [Concomitant]
     Active Substance: FUROSEMIDE
     Indication: CARDIAC PACEMAKER INSERTION
     Dosage: UNK
     Dates: start: 2010
  5. ASPIRINA [Concomitant]
     Active Substance: ASPIRIN
     Indication: CARDIAC PACEMAKER INSERTION
     Dosage: UNK
     Dates: start: 2010
  6. METFORMIN [Concomitant]
     Active Substance: METFORMIN HYDROCHLORIDE
     Indication: DIABETES MELLITUS
     Dosage: UNK
     Dates: start: 2007
  7. CARVEDILOL. [Concomitant]
     Active Substance: CARVEDILOL
     Indication: CARDIAC PACEMAKER INSERTION
     Dosage: UNK
     Dates: start: 2010
  8. SIMVASTATIN. [Concomitant]
     Active Substance: SIMVASTATIN
     Indication: CARDIAC PACEMAKER INSERTION
     Dosage: UNK
     Dates: start: 2010
  9. TAPAZOL [Concomitant]
     Indication: CARDIAC PACEMAKER INSERTION
     Dosage: UNK
     Dates: start: 2010
  10. SOMAVERT [Suspect]
     Active Substance: PEGVISOMANT
     Dosage: 20 MG, 1X/DAY
     Route: 058
     Dates: start: 2013

REACTIONS (5)
  - Fatigue [Unknown]
  - Pulmonary embolism [Unknown]
  - Drug ineffective [Unknown]
  - Cardiac disorder [Unknown]
  - Death [Fatal]

NARRATIVE: CASE EVENT DATE: 20131122
